FAERS Safety Report 8830436 (Version 2)
Quarter: 2012Q4

REPORT INFORMATION
  Report Type: 
  Country: CH (occurrence: CH)
  Receive Date: 20121009
  Receipt Date: 20121113
  Transmission Date: 20130627
  Serious: Yes (Other)
  Sender: FDA-Public Use
  Company Number: CH-ABBOTT-12P-151-0989413-00

PATIENT
  Sex: Female

DRUGS (1)
  1. HUMIRA [Suspect]
     Indication: PSORIASIS

REACTIONS (5)
  - Light chain analysis increased [Unknown]
  - Beta 2 microglobulin increased [Unknown]
  - Systemic lupus erythematosus [Unknown]
  - Antinuclear antibody increased [Unknown]
  - Arthralgia [Unknown]
